FAERS Safety Report 5802118-5 (Version None)
Quarter: 2008Q3

REPORT INFORMATION
  Report Type: 
  Country: None (occurrence: None)
  Receive Date: 20080702
  Receipt Date: 20080618
  Transmission Date: 20090109
  Serious: Yes (Disabling)
  Sender: FDA-Public Use
  Company Number: 2008S1010736

PATIENT
  Age: 36 Year
  Sex: Male

DRUGS (9)
  1. GABAPENTIN [Suspect]
     Indication: INTERVERTEBRAL DISC PROTRUSION
     Dosage: 300 MG; ORAL
     Route: 048
     Dates: start: 20080407, end: 20080409
  2. ACETAMINOPHEN [Suspect]
     Indication: INTERVERTEBRAL DISC PROTRUSION
     Dosage: ORAL
     Route: 048
     Dates: start: 20080407, end: 20080409
  3. TRAMADOL HCL [Suspect]
     Dosage: ORAL
     Route: 048
     Dates: start: 20080407, end: 20080409
  4. DICLOFENAC [Concomitant]
  5. THIOCOLCHICOSIDE [Concomitant]
  6. ETODOLAC [Concomitant]
  7. OMEPRAZOLE [Concomitant]
  8. CLARITHROMYCIN [Concomitant]
  9. DIAZEPAM [Concomitant]

REACTIONS (6)
  - NEUTROPHIL COUNT INCREASED [None]
  - PAIN IN EXTREMITY [None]
  - PYREXIA [None]
  - TREMOR [None]
  - WALKING DISABILITY [None]
  - WHITE BLOOD CELL COUNT INCREASED [None]
